FAERS Safety Report 7009937-0 (Version None)
Quarter: 2010Q3

REPORT INFORMATION
  Report Type: 
  Country: None (occurrence: None)
  Receive Date: 20100921
  Receipt Date: 20100902
  Transmission Date: 20110219
  Serious: Yes (Death, Other)
  Sender: FDA-Public Use
  Company Number: GB-ACCORD-005352

PATIENT
  Age: 69 Year
  Sex: Male

DRUGS (2)
  1. MYCOPHENOLATE MOFETIL [Suspect]
     Indication: RENAL TRANSPLANT
  2. CYCLOSPORINE [Suspect]
     Indication: RENAL TRANSPLANT

REACTIONS (7)
  - DERMATITIS EXFOLIATIVE [None]
  - DISEASE PROGRESSION [None]
  - ECTROPION [None]
  - HYPERKERATOSIS [None]
  - LYMPHADENOPATHY [None]
  - MYCOSIS FUNGOIDES [None]
  - RENAL FAILURE [None]
